FAERS Safety Report 5184345-6 (Version None)
Quarter: 2006Q4

REPORT INFORMATION
  Report Type: 
  Country: None (occurrence: None)
  Receive Date: 20061220
  Receipt Date: 20060331
  Transmission Date: 20070319
  Serious: No
  Sender: FDA-Public Use
  Company Number: US-GLAXOSMITHKLINE-A0599881A

PATIENT
  Age: 22 Year
  Sex: Male

DRUGS (4)
  1. NICODERM CQ [Suspect]
     Dates: start: 20060326
  2. NICORETTE [Suspect]
  3. COMMIT [Suspect]
  4. NICODERM CQ [Suspect]
     Dates: start: 20060326

REACTIONS (3)
  - ABNORMAL DREAMS [None]
  - COUGH [None]
  - THROAT IRRITATION [None]
